FAERS Safety Report 19731934 (Version 1)
Quarter: 2021Q3

REPORT INFORMATION
  Report Type: Spontaneous
  Country: US (occurrence: US)
  Receive Date: 20210820
  Receipt Date: 20210820
  Transmission Date: 20211014
  Serious: No
  Sender: FDA-Public Use
  Company Number: US-ALXN-A202109348

PATIENT
  Age: 56 Year
  Sex: Male
  Weight: 95.24 kg

DRUGS (1)
  1. SOLIRIS [Suspect]
     Active Substance: ECULIZUMAB
     Indication: MYASTHENIA GRAVIS
     Dosage: 1200 MG
     Route: 065

REACTIONS (6)
  - Fatigue [Unknown]
  - Headache [Unknown]
  - Vomiting [Unknown]
  - Pyrexia [Unknown]
  - Nausea [Unknown]
  - Amnesia [Unknown]

NARRATIVE: CASE EVENT DATE: 20210810
